FAERS Safety Report 6377819-3 (Version None)
Quarter: 2009Q3

REPORT INFORMATION
  Report Type: 
  Country: None (occurrence: None)
  Receive Date: 20090925
  Receipt Date: 20090915
  Transmission Date: 20100115
  Serious: Yes (Hospitalization)
  Sender: FDA-Public Use
  Company Number: AU-ELI_LILLY_AND_COMPANY-AU200909003087

PATIENT
  Age: 70 Year
  Sex: Female

DRUGS (5)
  1. CYMBALTA [Suspect]
     Indication: DEPRESSION
     Dosage: 60 MG, EACH MORNING
     Route: 065
  2. ZYPREXA [Suspect]
     Indication: BIPOLAR I DISORDER
     Dosage: 5 MG, UNKNOWN
     Route: 048
  3. ZYPREXA [Suspect]
     Dosage: 1.25 MG, UNKNOWN
     Route: 048
  4. TEGRETOL [Concomitant]
     Dosage: 200 MG, 2/D
     Route: 065
  5. TEMAZEPAM [Concomitant]
     Dosage: 10 MG, EACH EVENING
     Route: 065

REACTIONS (3)
  - DEPRESSION [None]
  - DRUG INEFFECTIVE [None]
  - MANIA [None]
